FAERS Safety Report 5789262-6 (Version None)
Quarter: 2008Q2

REPORT INFORMATION
  Report Type: 
  Country: None (occurrence: None)
  Receive Date: 20080626
  Receipt Date: 20080616
  Transmission Date: 20081010
  Serious: Yes (Death, Hospitalization)
  Sender: FDA-Public Use
  Company Number: US-JNJFOC-20080405828

PATIENT
  Sex: Female
  Weight: 88 kg

DRUGS (3)
  1. REMICADE [Suspect]
     Indication: CROHN'S DISEASE
  2. SOLU-MEDROL [Concomitant]
  3. ALL OTHER MEDICATIONS [Concomitant]

REACTIONS (7)
  - ANXIETY [None]
  - CHRONIC OBSTRUCTIVE PULMONARY DISEASE [None]
  - CROHN'S DISEASE [None]
  - DEATH [None]
  - DYSPNOEA [None]
  - FLUID RETENTION [None]
  - HOSPITALISATION [None]
